FAERS Safety Report 8420966-2 (Version None)
Quarter: 2012Q2

REPORT INFORMATION
  Report Type: 
  Country: None (occurrence: None)
  Receive Date: 20120608
  Receipt Date: 20120606
  Transmission Date: 20120825
  Serious: Yes (Other)
  Sender: FDA-Public Use
  Company Number: IT-PFIZER INC-2011139293

PATIENT
  Age: 76 Year
  Sex: Female

DRUGS (2)
  1. IRINOTECAN HCL [Suspect]
     Indication: COLON CANCER
     Dosage: 284.4 MG, CYCLIC
     Route: 042
     Dates: start: 20100316, end: 20100316
  2. ERBITUX [Suspect]
     Indication: COLON CANCER
     Dosage: 632 MG, CYCLIC
     Route: 042
     Dates: start: 20100316, end: 20100316

REACTIONS (2)
  - DYSPNOEA [None]
  - HYPERTENSION [None]
